FAERS Safety Report 8836688 (Version 1)
Quarter: 2012Q4

REPORT INFORMATION
  Report Type: Spontaneous
  Country: ES (occurrence: None)
  Receive Date: 20121009
  Receipt Date: 20121009
  Transmission Date: 20130627
  Serious: Yes (Hospitalization)
  Sender: FDA-Public Use
  Company Number: GER/SPN/12/0026043

PATIENT
  Age: 86 Year
  Sex: Male

DRUGS (2)
  1. LEVOFLOXACIN [Suspect]
     Indication: COMMUNITY ACQUIRED PNEUMONIA
     Route: 048
  2. LEVOFLOXACIN [Suspect]
     Indication: COMMUNITY ACQUIRED PNEUMONIA
     Dosage: 500 mg, total for the first 24 hours, Intravenous (not otherwise specified)
     Route: 042

REACTIONS (10)
  - Thrombocytopenia [None]
  - Renal failure [None]
  - Gastrointestinal haemorrhage [None]
  - Petechiae [None]
  - Anaemia macrocytic [None]
  - Abdominal pain [None]
  - Melaena [None]
  - Pallor [None]
  - Ecchymosis [None]
  - Mucosal discolouration [None]
